FAERS Safety Report 11144190 (Version 1)
Quarter: 2015Q2

REPORT INFORMATION
  Report Type: Spontaneous
  Country: US (occurrence: US)
  Receive Date: 20150526
  Receipt Date: 20150526
  Transmission Date: 20150821
  Serious: No
  Sender: FDA-Public Use
  Company Number: US-BIOGENIDEC-2015BI069619

PATIENT
  Age: 58 Year
  Sex: Female

DRUGS (2)
  1. AVONEX [Suspect]
     Active Substance: INTERFERON BETA-1A
     Indication: MULTIPLE SCLEROSIS
     Route: 030
     Dates: start: 19990901, end: 20070501
  2. AVONEX [Suspect]
     Active Substance: INTERFERON BETA-1A
     Indication: MULTIPLE SCLEROSIS
     Route: 030
     Dates: start: 20070528

REACTIONS (12)
  - Syncope [Unknown]
  - Dyspnoea [Unknown]
  - Dizziness [Unknown]
  - Somnolence [Unknown]
  - Memory impairment [Unknown]
  - Insomnia [Unknown]
  - Exercise tolerance decreased [Unknown]
  - Thinking abnormal [Unknown]
  - Musculoskeletal discomfort [Unknown]
  - Fall [Recovered/Resolved]
  - Ear discomfort [Unknown]
  - Balance disorder [Unknown]

NARRATIVE: CASE EVENT DATE: 20150504
